FAERS Safety Report 13843415 (Version 3)
Quarter: 2018Q1

REPORT INFORMATION
  Report Type: Spontaneous
  Country: MX (occurrence: MX)
  Receive Date: 20170808
  Receipt Date: 20180319
  Transmission Date: 20180508
  Serious: Yes (Life-Threatening, Hospitalization)
  Sender: FDA-Public Use
  Company Number: MX-ROCHE-1973201

PATIENT
  Age: 55 Year
  Sex: Female
  Weight: 60 kg

DRUGS (1)
  1. ROACTEMRA [Suspect]
     Active Substance: TOCILIZUMAB
     Indication: RHEUMATOID ARTHRITIS
     Route: 042
     Dates: start: 20170711

REACTIONS (21)
  - Hypotension [Recovering/Resolving]
  - Shock [Recovering/Resolving]
  - Thrombocytopenia [Recovering/Resolving]
  - Extremity necrosis [Recovering/Resolving]
  - Loss of consciousness [Recovering/Resolving]
  - Hepatic failure [Recovering/Resolving]
  - Anaphylactic shock [Recovering/Resolving]
  - Haemorrhage [Unknown]
  - Skin necrosis [Unknown]
  - Pulse absent [Recovering/Resolving]
  - Crying [Unknown]
  - Neutropenia [Recovering/Resolving]
  - Acute kidney injury [Not Recovered/Not Resolved]
  - Depression [Unknown]
  - Gait inability [Unknown]
  - Hypoglycaemia [Recovering/Resolving]
  - Incorrect drug dosage form administered [Unknown]
  - Vasculitis [Unknown]
  - Anxiety [Unknown]
  - Bedridden [Unknown]
  - Hypoperfusion [Recovering/Resolving]

NARRATIVE: CASE EVENT DATE: 20170711
